FAERS Safety Report 6433646-X (Version None)
Quarter: 2009Q4

REPORT INFORMATION
  Report Type: 
  Country: None (occurrence: None)
  Receive Date: 20091110
  Receipt Date: 20091106
  Transmission Date: 20100525
  Serious: Yes (Death, Hospitalization, Other)
  Sender: FDA-Public Use
  Company Number: PHHO2003DE03380

PATIENT
  Sex: Male
  Weight: 67 kg

DRUGS (6)
  1. ZOLEDRONATE T29581+SOLINF [Suspect]
     Indication: METASTASES TO BONE
     Dosage: 4 MG, QMO
     Route: 042
     Dates: start: 20021210, end: 20030210
  2. DURAGESIC-100 [Concomitant]
     Indication: PAIN
     Dosage: 100 UG, UNK
     Dates: start: 20021118
  3. VIOXX [Concomitant]
     Indication: PAIN
     Dosage: 2.5 MG, BID
     Route: 048
     Dates: start: 20030207, end: 20030307
  4. BARAZAN [Concomitant]
     Indication: URINARY TRACT INFECTION
     Dosage: 400 MG, BID
     Route: 048
     Dates: start: 20030207, end: 20030219
  5. NOVAMINSULFON [Concomitant]
     Indication: PAIN
     Dosage: UNK, PRN
     Route: 048
     Dates: start: 20021118, end: 20030207
  6. PAMIDRONATE DISODIUM [Concomitant]
     Dosage: 94 MG
     Route: 042
     Dates: start: 20021121

REACTIONS (9)
  - BLADDER CATHETERISATION [None]
  - CACHEXIA [None]
  - HAEMATURIA [None]
  - HEPATIC FUNCTION ABNORMAL [None]
  - JAUNDICE [None]
  - MALIGNANT NEOPLASM PROGRESSION [None]
  - PAIN [None]
  - THROMBOCYTOPENIA [None]
  - URINARY RETENTION [None]
